FAERS Safety Report 23222215 (Version 2)
Quarter: 2023Q4

REPORT INFORMATION
  Report Type: Spontaneous
  Country: BR (occurrence: BR)
  Receive Date: 20231123
  Receipt Date: 20231207
  Transmission Date: 20240110
  Serious: Yes (Other)
  Sender: FDA-Public Use
  Company Number: BR-009507513-2311BRA007415

PATIENT
  Sex: Female

DRUGS (8)
  1. KEYTRUDA [Suspect]
     Active Substance: PEMBROLIZUMAB
     Indication: Squamous cell carcinoma of the cervix
     Dosage: 200 MILLIGRAM, Q3W
     Route: 042
     Dates: start: 20220802
  2. PACLITAXEL [Suspect]
     Active Substance: PACLITAXEL
     Indication: Squamous cell carcinoma of the cervix
     Dosage: UNK; CYCLE 1
     Dates: start: 20220519, end: 20220519
  3. PACLITAXEL [Suspect]
     Active Substance: PACLITAXEL
     Dosage: UNK; CYCLE 2
     Dates: start: 20220709, end: 20220709
  4. PACLITAXEL [Suspect]
     Active Substance: PACLITAXEL
     Dosage: 175 MILLIGRAM/SQ. METER, Q3W
     Route: 042
     Dates: start: 20220802
  5. CARBOPLATIN [Suspect]
     Active Substance: CARBOPLATIN
     Indication: Squamous cell carcinoma of the cervix
     Dosage: UNK; CYCLE 1
     Dates: start: 20220519, end: 20220519
  6. CARBOPLATIN [Suspect]
     Active Substance: CARBOPLATIN
     Dosage: UNK; CYCLE 2
     Dates: start: 20220709, end: 20220709
  7. CARBOPLATIN [Suspect]
     Active Substance: CARBOPLATIN
     Dosage: AUC 5 MG/ML/MIN
     Route: 042
     Dates: start: 20220802
  8. BEVACIZUMAB [Suspect]
     Active Substance: BEVACIZUMAB
     Indication: Squamous cell carcinoma of the cervix
     Dosage: UNK; CYCLE 1
     Dates: start: 20220519, end: 20220519

REACTIONS (3)
  - Urogenital fistula [Unknown]
  - Thyroiditis [Unknown]
  - Adrenal disorder [Unknown]

NARRATIVE: CASE EVENT DATE: 20221201
